FAERS Safety Report 9320561 (Version 2)
Quarter: 2013Q3

REPORT INFORMATION
  Report Type: Spontaneous
  Country: SE (occurrence: SE)
  Receive Date: 20130531
  Receipt Date: 20130823
  Transmission Date: 20140515
  Serious: Yes (Other)
  Sender: FDA-Public Use
  Company Number: SE-ROCHE-1230605

PATIENT
  Age: 59 Year
  Sex: Female

DRUGS (13)
  1. ROACTEMRA [Suspect]
     Indication: RHEUMATOID ARTHRITIS
     Dosage: 20 MG/ML
     Route: 042
     Dates: start: 20130325
  2. DETRUSITOL [Concomitant]
     Route: 065
  3. NORSPAN PATCH [Concomitant]
     Route: 062
  4. FLUKONAZOL [Concomitant]
  5. KALIPOZ [Concomitant]
     Route: 048
  6. ATARAX (SWEDEN) [Concomitant]
     Route: 048
  7. AMLODIPIN [Concomitant]
  8. MORFIN [Concomitant]
  9. ALVEDON [Concomitant]
     Route: 048
  10. NITRAZEPAM [Concomitant]
     Route: 048
  11. CITODON [Concomitant]
  12. IMOVANE [Concomitant]
     Route: 065
  13. PREDNISOLON [Concomitant]

REACTIONS (1)
  - Lichen planus [Not Recovered/Not Resolved]
